FAERS Safety Report 4909507-1 (Version None)
Quarter: 2006Q1

REPORT INFORMATION
  Report Type: 
  Country: None (occurrence: None)
  Receive Date: 20060213
  Receipt Date: 20051001
  Transmission Date: 20060701
  Serious: Yes (Hospitalization, Disabling)
  Sender: FDA-Public Use
  Company Number: PR-MERCK-0510USA01058

PATIENT
  Age: 51 Year
  Sex: Male
  Weight: 75 kg

DRUGS (2)
  1. VIOXX [Suspect]
     Indication: MUSCLE DISORDER
     Route: 048
     Dates: start: 19990101
  2. VIOXX [Suspect]
     Indication: MYALGIA
     Route: 048
     Dates: start: 19990101

REACTIONS (17)
  - ACCIDENT [None]
  - ALANINE AMINOTRANSFERASE INCREASED [None]
  - ANGINA PECTORIS [None]
  - ANGINA UNSTABLE [None]
  - ARRHYTHMIA [None]
  - ASPARTATE AMINOTRANSFERASE INCREASED [None]
  - CARDIAC DISORDER [None]
  - CEREBROVASCULAR ACCIDENT [None]
  - DEPRESSION [None]
  - EMPHYSEMA [None]
  - MYOCARDIAL INFARCTION [None]
  - NERVOUS SYSTEM DISORDER [None]
  - ORGAN FAILURE [None]
  - POLYTRAUMATISM [None]
  - PULMONARY EMBOLISM [None]
  - PYREXIA [None]
  - THROMBOSIS [None]
